FAERS Safety Report 24784384 (Version 1)
Quarter: 2024Q4

REPORT INFORMATION
  Report Type: Spontaneous
  Country: US (occurrence: US)
  Receive Date: 20241227
  Receipt Date: 20241227
  Transmission Date: 20250115
  Serious: No
  Sender: MERCK
  Company Number: US-009507513-2412USA007078

PATIENT
  Sex: Female

DRUGS (5)
  1. WINREVAIR [Suspect]
     Active Substance: SOTATERCEPT-CSRK
     Indication: Product used for unknown indication
     Dosage: UNK
     Dates: start: 2024
  2. TYVASO DPI [Suspect]
     Active Substance: TREPROSTINIL
     Indication: Pulmonary arterial hypertension
     Dosage: 96 MICROGRAM, QID (48 MICROGRAM + 48 MICROGRAM)
     Dates: start: 202212
  3. MACITENTAN\TADALAFIL [Concomitant]
     Active Substance: MACITENTAN\TADALAFIL
  4. OPSUMIT [Concomitant]
     Active Substance: MACITENTAN
  5. OFEV [Concomitant]
     Active Substance: NINTEDANIB

REACTIONS (2)
  - Injection site irritation [Not Recovered/Not Resolved]
  - Injection site bruising [Not Recovered/Not Resolved]

NARRATIVE: CASE EVENT DATE: 20240101
